FAERS Safety Report 7440558-1 (Version None)
Quarter: 2011Q2

REPORT INFORMATION
  Report Type: 
  Country: None (occurrence: None)
  Receive Date: 20110427
  Receipt Date: 20110422
  Transmission Date: 20111010
  Serious: Yes (Other)
  Sender: FDA-Public Use
  Company Number: A0924222A

PATIENT
  Age: 72 Year
  Sex: Female

DRUGS (4)
  1. PROTONIX [Concomitant]
  2. VITAMINS [Concomitant]
  3. ADVAIR DISKUS 100/50 [Suspect]
     Dosage: 1APP SINGLE DOSE
     Route: 055
     Dates: start: 20110420, end: 20110420
  4. BLOOD PRESSURE MEDICATION [Concomitant]

REACTIONS (3)
  - PSYCHOMOTOR HYPERACTIVITY [None]
  - HALLUCINATION [None]
  - DISORIENTATION [None]
